FAERS Safety Report 4379963-9 (Version None)
Quarter: 2004Q2

REPORT INFORMATION
  Report Type: 
  Country: None (occurrence: None)
  Receive Date: 20040614
  Receipt Date: 20040603
  Transmission Date: 20050107
  Serious: Yes (Death)
  Sender: FDA-Public Use
  Company Number: CAP04000147

PATIENT
  Age: 82 Year
  Sex: Female

DRUGS (1)
  1. MACROBID [Suspect]
     Indication: URINARY TRACT INFECTION
     Dosage: 100 MG TWICE DAILY, ORAL
     Route: 048
     Dates: start: 20040507, end: 20040514

REACTIONS (1)
  - PANCREATITIS ACUTE [None]
